FAERS Safety Report 8857925 (Version 1)
Quarter: 2012Q4

REPORT INFORMATION
  Report Type: 
  Country: US (occurrence: US)
  Receive Date: 20121024
  Receipt Date: 20121024
  Transmission Date: 20130627
  Serious: No
  Sender: FDA-Public Use
  Company Number: US-AMGEN-USASP2012003301

PATIENT
  Age: 4 Year
  Sex: Female
  Weight: 11.34 kg

DRUGS (1)
  1. ENBREL [Suspect]
     Indication: JUVENILE ARTHRITIS
     Dosage: 0.4 ml, UNK
     Dates: start: 20090616

REACTIONS (1)
  - Nasopharyngitis [Unknown]
